FAERS Safety Report 22893007 (Version 2)
Quarter: 2023Q4

REPORT INFORMATION
  Report Type: Spontaneous
  Country: DK (occurrence: DK)
  Receive Date: 20230901
  Receipt Date: 20231012
  Transmission Date: 20240109
  Serious: Yes (Hospitalization, Other)
  Sender: FDA-Public Use
  Company Number: DK-Accord-375812

PATIENT
  Age: 65 Year
  Sex: Male

DRUGS (3)
  1. PACLITAXEL [Suspect]
     Active Substance: PACLITAXEL
     Indication: Apocrine breast carcinoma
  2. TRASTUZUMAB [Concomitant]
     Active Substance: TRASTUZUMAB
     Indication: Apocrine breast carcinoma
     Dosage: 8 MG/KG LOADING DOSE, AFTERWARD 6 MG/KG
  3. PERTUZUMAB [Concomitant]
     Active Substance: PERTUZUMAB
     Indication: Apocrine breast carcinoma
     Dosage: 840 MG INITIALLY, 420 MG FOLLOWING SERIES

REACTIONS (4)
  - Nail disorder [Unknown]
  - Fatigue [Unknown]
  - Neuropathy peripheral [Unknown]
  - Erysipelas [Unknown]
